FAERS Safety Report 8181594-X (Version None)
Quarter: 2012Q1

REPORT INFORMATION
  Report Type: 
  Country: None (occurrence: None)
  Receive Date: 20120302
  Receipt Date: 20120222
  Transmission Date: 20120608
  Serious: Yes (Hospitalization)
  Sender: FDA-Public Use
  Company Number: CA-ELI_LILLY_AND_COMPANY-CA201110005784

PATIENT
  Sex: Female

DRUGS (18)
  1. CLOTRIMAZOLE [Concomitant]
     Dosage: UNK, UNKNOWN
     Route: 065
  2. CALCIUM CARBONATE [Concomitant]
     Dosage: UNK, UNKNOWN
     Route: 065
  3. LEVOTHYROXINE SODIUM [Concomitant]
     Dosage: UNK, UNKNOWN
     Route: 065
  4. ASPIRIN [Concomitant]
     Dosage: UNK, UNKNOWN
     Route: 065
  5. DIGOXIN [Concomitant]
     Dosage: UNK, UNKNOWN
     Route: 065
  6. DOCUSATE SODIUM [Concomitant]
     Dosage: UNK, UNKNOWN
     Route: 065
  7. LANSOPRAZOLE [Concomitant]
     Dosage: UNK, UNKNOWN
     Route: 065
  8. PREDNISONE TAB [Concomitant]
     Dosage: UNK, UNKNOWN
     Route: 065
  9. LORAZEPAM [Concomitant]
     Dosage: UNK, UNKNOWN
     Route: 065
  10. METOPROLOL SUCCINATE [Concomitant]
     Dosage: UNK, UNKNOWN
     Route: 065
  11. CYCLOSPORINE [Concomitant]
     Dosage: UNK, UNKNOWN
     Route: 065
  12. HYDROMORPHONE HCL [Concomitant]
     Dosage: UNK, UNKNOWN
     Route: 065
  13. FORTEO [Suspect]
     Indication: OSTEOPOROSIS
     Dosage: 20 UG, QD
     Route: 058
     Dates: start: 20100514, end: 20110501
  14. GABAPENTIN [Concomitant]
     Dosage: UNK, UNKNOWN
     Route: 065
  15. FERROUS GLUCONATE [Concomitant]
     Dosage: UNK, UNKNOWN
     Route: 065
  16. POTASSIUM CHLORIDE [Concomitant]
     Dosage: UNK, UNKNOWN
     Route: 065
  17. VITAMIN D [Concomitant]
     Dosage: UNK, UNKNOWN
     Route: 065
  18. ZOLOFT [Concomitant]
     Dosage: UNK, UNKNOWN
     Route: 065

REACTIONS (2)
  - MALAISE [None]
  - GASTROENTERITIS [None]
